FAERS Safety Report 20564650 (Version 2)
Quarter: 2022Q1

REPORT INFORMATION
  Report Type: Spontaneous
  Country: US (occurrence: US)
  Receive Date: 20220308
  Receipt Date: 20220323
  Transmission Date: 20220423
  Serious: Yes (Hospitalization)
  Sender: FDA-Public Use
  Company Number: US-AVEO ONCOLOGY-2022-AVEO-US000024

PATIENT

DRUGS (2)
  1. FOTIVDA [Suspect]
     Active Substance: TIVOZANIB HYDROCHLORIDE
     Indication: Renal cell carcinoma
     Dosage: 1.34 MG, DAILY 1-21 DAYS OF EACH 28 DAY CYCLE
     Route: 048
     Dates: start: 20211125
  2. ELIQUIS [Concomitant]
     Active Substance: APIXABAN

REACTIONS (14)
  - Blood potassium decreased [Unknown]
  - Blood magnesium decreased [Unknown]
  - Dizziness [Unknown]
  - Dysstasia [Unknown]
  - Balance disorder [Unknown]
  - Altered state of consciousness [Unknown]
  - Diarrhoea [Unknown]
  - Fatigue [Unknown]
  - Decreased appetite [Unknown]
  - Vomiting [Unknown]
  - Irritability [Unknown]
  - Malaise [Unknown]
  - Laboratory test abnormal [Unknown]
  - Product dose omission issue [Unknown]
